FAERS Safety Report 16747155 (Version 1)
Quarter: 2019Q3

REPORT INFORMATION
  Report Type: Spontaneous
  Country: US (occurrence: US)
  Receive Date: 20190827
  Receipt Date: 20190827
  Transmission Date: 20191005
  Serious: No
  Sender: FDA-Public Use
  Company Number: US-SA-2019SA238888

PATIENT
  Age: 57 Year
  Sex: Male

DRUGS (1)
  1. PRALUENT [Suspect]
     Active Substance: ALIROCUMAB
     Indication: LIBIDO DECREASED
     Dosage: 75 MG, QOW
     Route: 058
     Dates: start: 20180828

REACTIONS (1)
  - Gastric disorder [Not Recovered/Not Resolved]
